FAERS Safety Report 9690043 (Version 5)
Quarter: 2014Q3

REPORT INFORMATION
  Report Type: Report from Study
  Country: US (occurrence: US)
  Receive Date: 20131115
  Receipt Date: 20140706
  Transmission Date: 20150326
  Serious: Yes (Death, Hospitalization, Other)
  Sender: FDA-Public Use
  Company Number: US-ALEXION PHARMACEUTICALS INC.-A201302969

PATIENT

DRUGS (1)
  1. SOLIRIS [Suspect]
     Active Substance: ECULIZUMAB
     Indication: HAEMOLYTIC URAEMIC SYNDROME
     Dosage: UNK
     Route: 042
     Dates: start: 20120817

REACTIONS (8)
  - Respiratory disorder [Fatal]
  - Skin wound [Unknown]
  - Bacteraemia [Unknown]
  - Graft complication [Unknown]
  - Respiratory failure [Fatal]
  - Oxygen saturation decreased [Fatal]
  - Condition aggravated [Unknown]
  - Graft versus host disease in lung [Fatal]

NARRATIVE: CASE EVENT DATE: 2013
